FAERS Safety Report 19804819 (Version 3)
Quarter: 2022Q1

REPORT INFORMATION
  Report Type: Spontaneous
  Country: IN (occurrence: IN)
  Receive Date: 20210908
  Receipt Date: 20220110
  Transmission Date: 20220424
  Serious: Yes (Death)
  Sender: FDA-Public Use
  Company Number: IN-PFIZER INC-202101144699

PATIENT
  Age: 55 Year
  Sex: Female

DRUGS (1)
  1. CRIZOTINIB [Suspect]
     Active Substance: CRIZOTINIB
     Indication: ALK gene rearrangement positive
     Dosage: 250 MG
     Route: 048
     Dates: start: 20170331

REACTIONS (1)
  - Neoplasm progression [Fatal]
